FAERS Safety Report 4377470-0 (Version None)
Quarter: 2004Q2

REPORT INFORMATION
  Report Type: 
  Country: None (occurrence: None)
  Receive Date: 20040615
  Receipt Date: 20040416
  Transmission Date: 20050107
  Serious: Yes (Congenital Anomaly, Other)
  Sender: FDA-Public Use
  Company Number: PHBS2004CH05157

PATIENT
  Sex: Male

DRUGS (3)
  1. CO-DIOVAN [Suspect]
     Route: 064
  2. TRANDATE [Concomitant]
     Route: 064
  3. INSULIN [Concomitant]
     Route: 064

REACTIONS (3)
  - CONGENITAL CENTRAL NERVOUS SYSTEM ANOMALY [None]
  - CONGENITAL MULTIPLEX ARTHROGRYPOSIS [None]
  - SKULL MALFORMATION [None]
